FAERS Safety Report 10157097 (Version 2)
Quarter: 2014Q2

REPORT INFORMATION
  Report Type: Spontaneous
  Country: US (occurrence: US)
  Receive Date: 20140507
  Receipt Date: 20140515
  Transmission Date: 20141212
  Serious: Yes (Disabling, Other)
  Sender: FDA-Public Use
  Company Number: US-BAYER-2014-064426

PATIENT
  Age: 41 Year
  Sex: Female
  Weight: 70.07 kg

DRUGS (2)
  1. YAZ [Suspect]
     Dosage: UNK
     Dates: start: 200803, end: 200808
  2. YASMIN [Suspect]

REACTIONS (9)
  - Intracardiac thrombus [None]
  - Injury [None]
  - Pain [None]
  - Emotional distress [None]
  - Anxiety [None]
  - Fear of death [None]
  - Pain [None]
  - Deep vein thrombosis [None]
  - Peripheral swelling [None]
